FAERS Safety Report 23996095 (Version 1)
Quarter: 2024Q2

REPORT INFORMATION
  Report Type: Spontaneous
  Country: US (occurrence: US)
  Receive Date: 20240620
  Receipt Date: 20240620
  Transmission Date: 20240716
  Serious: No
  Sender: FDA-Public Use
  Company Number: US-BRACCO-2024US00135

PATIENT
  Age: 62 Year
  Sex: Male

DRUGS (6)
  1. AXUMIN [Suspect]
     Active Substance: FLUCICLOVINE F-18
     Indication: Positron emission tomogram
     Dosage: UNK UNK, SINGLE
     Dates: start: 20231229, end: 20231229
  2. FLUTICASONE [Concomitant]
     Active Substance: FLUTICASONE
     Dosage: 50 MCG DAILY
  3. HYDROCHLOROTHIAZIDE [Concomitant]
     Active Substance: HYDROCHLOROTHIAZIDE
     Dosage: 12.5 MG 2X DAILY
     Route: 048
  4. LISINOPRIL [Concomitant]
     Active Substance: LISINOPRIL
     Dosage: 10-12.5 MG 1 DAILY
  5. METFORMIN [Concomitant]
     Active Substance: METFORMIN HYDROCHLORIDE
     Dosage: 500 MG 2X DAILY
     Route: 048
  6. OMEPRAZOLE [Concomitant]
     Active Substance: DONEPEZIL HYDROCHLORIDE\OMEPRAZOLE\OMEPRAZOLE MAGNESIUM
     Dosage: 20 MG 1 DAILY
     Route: 048

REACTIONS (1)
  - Positron emission tomogram abnormal [Unknown]

NARRATIVE: CASE EVENT DATE: 20231229
